FAERS Safety Report 25069371 (Version 1)
Quarter: 2025Q1

REPORT INFORMATION
  Report Type: Spontaneous
  Country: US (occurrence: US)
  Receive Date: 20250312
  Receipt Date: 20250312
  Transmission Date: 20250409
  Serious: Yes (Other)
  Sender: AMGEN
  Company Number: US-AMGEN-USASP2025041418

PATIENT
  Age: 23 Year
  Sex: Female

DRUGS (5)
  1. PREDNISONE [Suspect]
     Active Substance: PREDNISONE
     Indication: Dermatomyositis
     Route: 065
  2. PREDNISONE [Suspect]
     Active Substance: PREDNISONE
     Route: 065
  3. PREDNISONE [Suspect]
     Active Substance: PREDNISONE
     Route: 065
  4. HYDROXYCHLOROQUINE [Concomitant]
     Active Substance: HYDROXYCHLOROQUINE
  5. METHOTREXATE [Concomitant]
     Active Substance: METHOTREXATE

REACTIONS (8)
  - Dermatomyositis [Recovering/Resolving]
  - Laryngeal oedema [Recovering/Resolving]
  - Gastrooesophageal reflux disease [Recovering/Resolving]
  - Laryngeal cyst [Recovering/Resolving]
  - Gastritis [Recovering/Resolving]
  - Vocal cord paresis [Recovering/Resolving]
  - Vocal cord cyst [Recovering/Resolving]
  - Reflux laryngitis [Recovering/Resolving]
